FAERS Safety Report 9422559 (Version 2)
Quarter: 2013Q3

REPORT INFORMATION
  Report Type: Spontaneous
  Country: CA (occurrence: CA)
  Receive Date: 20130726
  Receipt Date: 20130731
  Transmission Date: 20140515
  Serious: Yes (Hospitalization)
  Sender: FDA-Public Use
  Company Number: CA-SANOFI-AVENTIS-2013SA073388

PATIENT
  Age: 69 Year
  Sex: Female

DRUGS (14)
  1. FERRLECIT [Suspect]
     Indication: IRON DEFICIENCY ANAEMIA
     Dosage: DOSE: 250 MG DILUTED IN 250 ML NACL 0.9, ADMINISTERED OVER ONE HOUR
     Route: 042
     Dates: start: 20130704, end: 20130704
  2. INFUFER [Concomitant]
     Indication: IRON DEFICIENCY ANAEMIA
     Dosage: DOSE: 25 MG ELEMENTAL IRON TEST DOSE + 100 MG ELEMENTAL IRON DOSE
     Route: 042
  3. INFUFER [Concomitant]
     Indication: IRON DEFICIENCY ANAEMIA
     Route: 042
  4. INFUFER [Concomitant]
     Indication: IRON DEFICIENCY ANAEMIA
     Route: 042
  5. COLACE [Concomitant]
     Route: 048
  6. HUMALOG [Concomitant]
     Indication: TYPE 1 DIABETES MELLITUS
     Route: 058
  7. CALCIUM/VITAMIN D [Concomitant]
     Route: 048
  8. PANTOLOC [Concomitant]
     Route: 048
  9. AVAPRO HCT [Concomitant]
     Indication: HYPERTENSION
     Dosage: DOSE: 50/12.5 MG
     Route: 048
  10. SENNOSIDE A [Concomitant]
     Route: 048
  11. ZOCOR [Concomitant]
     Indication: ANGIOPATHY
     Route: 048
  12. SYNTHROID [Concomitant]
     Indication: HYPOTHYROIDISM
     Route: 048
  13. COUMADIN [Concomitant]
     Indication: ATRIAL FIBRILLATION
     Dosage: DOSE: 5 MG 4 DAYS OF THE WEEK AND 7.5 MG 3 DAYS OF THE WEEK
     Route: 048
  14. REMERON [Concomitant]
     Route: 048

REACTIONS (6)
  - Petit mal epilepsy [Recovered/Resolved]
  - Gait disturbance [Recovered/Resolved]
  - Chest discomfort [Recovered/Resolved]
  - Back pain [Recovered/Resolved]
  - Nausea [Recovered/Resolved]
  - Hypotension [Recovered/Resolved]
